FAERS Safety Report 9756671 (Version 5)
Quarter: 2014Q4

REPORT INFORMATION
  Report Type: Spontaneous
  Country: JP (occurrence: JP)
  Receive Date: 20131213
  Receipt Date: 20141016
  Transmission Date: 20150529
  Serious: Yes (Death)
  Sender: FDA-Public Use
  Company Number: JP-MALLINCKRODT-T201305091

PATIENT
  Age: 50 Year
  Sex: Female
  Weight: 57.4 kg

DRUGS (16)
  1. METHADONE [Suspect]
     Active Substance: METHADONE HYDROCHLORIDE
     Dosage: 20 MG, (60 MG DAILY DOSE)
     Route: 048
     Dates: start: 20130905, end: 20130918
  2. PHENOL. [Concomitant]
     Active Substance: PHENOL
     Dosage: 60 MG, UNK
     Route: 051
     Dates: start: 20130903, end: 20130903
  3. GLYCERIN. [Concomitant]
     Active Substance: GLYCERIN
     Dosage: UNK
     Route: 051
     Dates: start: 20130903, end: 20130903
  4. PHENOL. [Concomitant]
     Active Substance: PHENOL
     Dosage: 45 MG, UNK
     Route: 051
     Dates: start: 20130902, end: 20130902
  5. NEXIUM [Concomitant]
     Active Substance: ESOMEPRAZOLE MAGNESIUM
     Dosage: 20 MG, UNK
     Route: 048
     Dates: start: 20130829, end: 20130917
  6. SERENACE [Concomitant]
     Active Substance: HALOPERIDOL
     Dosage: 10 MG, UNK
     Route: 051
     Dates: start: 20130917, end: 20130922
  7. REMERON [Concomitant]
     Active Substance: MIRTAZAPINE
     Dosage: 7.5 MG, UNK
     Route: 048
     Dates: start: 20130831, end: 20130912
  8. MEILAX [Concomitant]
     Active Substance: ETHYL LOFLAZEPATE
     Dosage: 1 MG, UNK
     Route: 048
     Dates: start: 20130905, end: 20130917
  9. METHADONE [Suspect]
     Active Substance: METHADONE HYDROCHLORIDE
     Indication: CANCER PAIN
     Dosage: 15 MG, (45 MG DAILY DOSE)
     Route: 048
     Dates: start: 20130829, end: 20130904
  10. OXINORM [Concomitant]
     Active Substance: OXYCODONE HYDROCHLORIDE
     Dosage: 10 MG, PRN
     Route: 048
     Dates: start: 20130904
  11. SEROQUEL [Concomitant]
     Active Substance: QUETIAPINE FUMARATE
     Dosage: 25 MG, UNK
     Route: 048
     Dates: start: 20130830, end: 20130917
  12. DORMICUM [Concomitant]
     Active Substance: MIDAZOLAM\MIDAZOLAM HYDROCHLORIDE
     Dosage: 40 MG, UNK
     Route: 051
     Dates: start: 20130917, end: 20130922
  13. CALONAL [Concomitant]
     Active Substance: ACETAMINOPHEN
     Dosage: 1600 MG, UNK
     Route: 048
     Dates: start: 20130904, end: 20130918
  14. GOREI-SAN [Concomitant]
     Active Substance: HERBALS
     Dosage: 7.5 MG, UNK
     Route: 048
     Dates: start: 20130905, end: 20130917
  15. CYMBALTA [Concomitant]
     Active Substance: DULOXETINE HYDROCHLORIDE
     Dosage: 20 MG, UNK
     Route: 048
     Dates: start: 20130911, end: 20130917
  16. GLYCERIN. [Concomitant]
     Active Substance: GLYCERIN
     Dosage: UNK
     Route: 051
     Dates: start: 20130902, end: 20130902

REACTIONS (5)
  - Oedema peripheral [Not Recovered/Not Resolved]
  - Depressive symptom [Unknown]
  - Delirium [Unknown]
  - Breast cancer [Fatal]
  - Insomnia [Recovering/Resolving]

NARRATIVE: CASE EVENT DATE: 20130829
